FAERS Safety Report 7004401-7 (Version None)
Quarter: 2010Q3

REPORT INFORMATION
  Report Type: 
  Country: None (occurrence: None)
  Receive Date: 20100921
  Receipt Date: 20100910
  Transmission Date: 20110219
  Serious: No
  Sender: FDA-Public Use
  Company Number: US-BIOGENIDEC-2010BI031888

PATIENT
  Age: 27 Year
  Sex: Female

DRUGS (1)
  1. TYSABRI [Suspect]
     Indication: MULTIPLE SCLEROSIS
     Route: 042
     Dates: start: 20091005

REACTIONS (6)
  - ABNORMAL BEHAVIOUR [None]
  - ALCOHOL POISONING [None]
  - DRUG ABUSE [None]
  - NAUSEA [None]
  - OCULAR HYPERAEMIA [None]
  - VOMITING [None]
